FAERS Safety Report 20445019 (Version 5)
Quarter: 2022Q1

REPORT INFORMATION
  Report Type: Report from Study
  Country: FR (occurrence: FR)
  Receive Date: 20220208
  Receipt Date: 20220315
  Transmission Date: 20220423
  Serious: Yes (Hospitalization, Other)
  Sender: FDA-Public Use
  Company Number: FR-BRISTOL-MYERS SQUIBB COMPANY-BMS-2022-011313

PATIENT
  Age: 77 Year
  Sex: Male

DRUGS (7)
  1. NIVOLUMAB [Suspect]
     Active Substance: NIVOLUMAB
     Indication: T-cell lymphoma
     Dosage: 240 MILLIGRAM, 1X/CYCLE
     Route: 042
     Dates: start: 20220111, end: 20220111
  2. GEMCITABINE HYDROCHLORIDE [Suspect]
     Active Substance: GEMCITABINE HYDROCHLORIDE
     Indication: T-cell lymphoma
     Dosage: 1938 MILLIGRAM, 1X/CYCLE
     Route: 042
     Dates: start: 20220114, end: 20220114
  3. OXALIPLATIN [Suspect]
     Active Substance: OXALIPLATIN
     Indication: T-cell lymphoma
     Dosage: 190 MILLIGRAM, 1X/CYCLE
     Route: 042
     Dates: start: 20220114, end: 20220114
  4. FILGRASTIM [Suspect]
     Active Substance: FILGRASTIM
     Indication: T-cell lymphoma
     Dosage: 300 MICROGRAM, 5X/CYCLE
     Route: 058
     Dates: start: 20220119, end: 20220123
  5. SULFAMETHOXAZOLE\TRIMETHOPRIM [Concomitant]
     Active Substance: SULFAMETHOXAZOLE\TRIMETHOPRIM
     Indication: Infection prophylaxis
     Dosage: 800 MILLIGRAM, Q3WK
     Route: 048
     Dates: start: 20220107, end: 20220124
  6. VALACYCLOVIR HYDROCHLORIDE [Concomitant]
     Active Substance: VALACYCLOVIR HYDROCHLORIDE
     Indication: Infection prophylaxis
     Dosage: 500 MILLIGRAM, Q2WK
     Route: 048
     Dates: start: 20220107, end: 20220124
  7. LEUCOVORIN CALCIUM [Concomitant]
     Active Substance: LEUCOVORIN CALCIUM
     Indication: Anaemia prophylaxis
     Dosage: 25 MILLIGRAM, QWK
     Route: 048
     Dates: start: 20220107, end: 20220124

REACTIONS (1)
  - Drug reaction with eosinophilia and systemic symptoms [Recovered/Resolved]

NARRATIVE: CASE EVENT DATE: 20220123
